FAERS Safety Report 5756137-8 (Version None)
Quarter: 2008Q2

REPORT INFORMATION
  Report Type: 
  Country: None (occurrence: None)
  Receive Date: 20080602
  Receipt Date: 20080523
  Transmission Date: 20081010
  Serious: Yes (Other)
  Sender: FDA-Public Use
  Company Number: JP-ABBOTT-08P-087-0454389-00

PATIENT
  Sex: Male
  Weight: 61.3 kg

DRUGS (8)
  1. SEVOFLURANE [Suspect]
     Indication: INDUCTION OF ANAESTHESIA
     Route: 055
     Dates: start: 20070417, end: 20070417
  2. SEVOFLURANE [Suspect]
     Indication: MAINTENANCE OF ANAESTHESIA
  3. PROPOFOL [Suspect]
     Indication: INDUCTION OF ANAESTHESIA
     Route: 042
     Dates: start: 20080417, end: 20080417
  4. ESLAX [Suspect]
     Indication: MUSCLE RELAXANT THERAPY
     Route: 042
     Dates: start: 20080417, end: 20080417
  5. 1% ZYLOCAINE [Concomitant]
     Indication: LOCAL ANAESTHESIA
     Dosage: 4ML  + 4ML + 2 ML
     Route: 061
     Dates: start: 20080417, end: 20080417
  6. ATROPINE SULFATE [Concomitant]
     Indication: DRUG USE FOR UNKNOWN INDICATION
  7. FENTANYL CITRATE [Concomitant]
     Indication: DRUG USE FOR UNKNOWN INDICATION
  8. CEFAZOLIN SODIUM [Concomitant]
     Indication: DRUG USE FOR UNKNOWN INDICATION

REACTIONS (4)
  - ASPARTATE AMINOTRANSFERASE INCREASED [None]
  - BLOOD CREATINE PHOSPHOKINASE INCREASED [None]
  - CHROMATURIA [None]
  - RHABDOMYOLYSIS [None]
